FAERS Safety Report 25925982 (Version 1)
Quarter: 2025Q4

REPORT INFORMATION
  Report Type: Spontaneous
  Country: US (occurrence: None)
  Receive Date: 20251014
  Receipt Date: 20251014
  Transmission Date: 20260117
  Serious: Yes (Life-Threatening)
  Sender: FDA-CTU
  Company Number: None

PATIENT
  Age: 64 Year
  Sex: Male
  Weight: 64 kg

DRUGS (1)
  1. REMDESIVIR [Suspect]
     Active Substance: REMDESIVIR

REACTIONS (3)
  - Tumour marker increased [None]
  - Tumour lysis syndrome [None]
  - General physical health deterioration [None]

NARRATIVE: CASE EVENT DATE: 20220725
